FAERS Safety Report 17021591 (Version 2)
Quarter: 2020Q1

REPORT INFORMATION
  Report Type: Spontaneous
  Country: US (occurrence: US)
  Receive Date: 20191112
  Receipt Date: 20200123
  Transmission Date: 20200409
  Serious: Yes (Other)
  Sender: FDA-Public Use
  Company Number: US-BAYER-2019-203751

PATIENT
  Age: 30 Year
  Sex: Female

DRUGS (1)
  1. MIRENA [Suspect]
     Active Substance: LEVONORGESTREL
     Indication: CONTRACEPTION
     Dosage: 20 MCG/24HR, CONT
     Route: 015
     Dates: start: 20191031, end: 20191112

REACTIONS (3)
  - Genital haemorrhage [Recovered/Resolved]
  - Medical device monitoring error [Recovered/Resolved]
  - Contraindicated device used [Recovered/Resolved]

NARRATIVE: CASE EVENT DATE: 20191031
